FAERS Safety Report 14537407 (Version 6)
Quarter: 2019Q1

REPORT INFORMATION
  Report Type: Spontaneous
  Country: US (occurrence: US)
  Receive Date: 20180215
  Receipt Date: 20190114
  Transmission Date: 20190417
  Serious: Yes (Hospitalization, Disabling)
  Sender: FDA-Public Use
  Company Number: US-ACTELION-A-NJ2018-167466

PATIENT
  Age: 40 Year
  Sex: Female

DRUGS (8)
  1. METOLAZONE. [Concomitant]
     Active Substance: METOLAZONE
  2. HYDRALAZINE [Concomitant]
     Active Substance: HYDRALAZINE HYDROCHLORIDE
  3. SILDENAFIL. [Concomitant]
     Active Substance: SILDENAFIL
  4. CRESTOR [Concomitant]
     Active Substance: ROSUVASTATIN CALCIUM
  5. TORSEMIDE. [Concomitant]
     Active Substance: TORSEMIDE
  6. METOPROLOL. [Concomitant]
     Active Substance: METOPROLOL
  7. TYVASO [Suspect]
     Active Substance: TREPROSTINIL
     Indication: PRODUCT USED FOR UNKNOWN INDICATION
     Route: 048
  8. TRACLEER [Suspect]
     Active Substance: BOSENTAN
     Indication: PULMONARY ARTERIAL HYPERTENSION
     Dosage: 62.5 MG, BID
     Route: 048
     Dates: start: 20171122

REACTIONS (12)
  - Dyspnoea [Recovered/Resolved]
  - Atrial flutter [Recovered/Resolved]
  - Concomitant disease progression [Not Recovered/Not Resolved]
  - Chest pain [Recovered/Resolved]
  - Palpitations [Recovered/Resolved]
  - Urine output decreased [Recovered/Resolved]
  - Cardiac failure [Recovered/Resolved]
  - Chronic kidney disease [Not Recovered/Not Resolved]
  - Fluid overload [Not Recovered/Not Resolved]
  - Pulmonary hypertension [Recovered/Resolved]
  - Renal impairment [Not Recovered/Not Resolved]
  - Biopsy [Unknown]

NARRATIVE: CASE EVENT DATE: 20180806
